FAERS Safety Report 5073283-5 (Version None)
Quarter: 2006Q3

REPORT INFORMATION
  Report Type: 
  Country: None (occurrence: None)
  Receive Date: 20060802
  Receipt Date: 20060719
  Transmission Date: 20061208
  Serious: Yes (Other)
  Sender: FDA-Public Use
  Company Number: 2006086295

PATIENT
  Age: 58 Year
  Sex: Female
  Weight: 97.5234 kg

DRUGS (6)
  1. CELEBREX [Suspect]
     Indication: ARTHRITIS
     Dosage: 400 MG (200 MG, 2 IN 1 D)
     Dates: start: 19990101
  2. PREDNISONE TAB [Concomitant]
  3. MUSCLE RELAXANTS (MUSCLE RELAXANTS) [Concomitant]
  4. DARVOCET [Concomitant]
  5. TRIAMTERENE (TRIAMTERENE) [Concomitant]
  6. ANTIHYPERTENSIVES (ANTIHYPERTENSIVES) [Concomitant]

REACTIONS (15)
  - ABDOMINAL PAIN UPPER [None]
  - ANGINA PECTORIS [None]
  - ARTHRITIS [None]
  - BLOOD CHOLESTEROL INCREASED [None]
  - CARDIAC DISORDER [None]
  - CARDIAC STRESS TEST ABNORMAL [None]
  - CONDITION AGGRAVATED [None]
  - DIVERTICULITIS [None]
  - DYSPEPSIA [None]
  - DYSPNOEA [None]
  - ENDOSCOPY ABNORMAL [None]
  - HAEMATOCHEZIA [None]
  - HAEMORRHOIDAL HAEMORRHAGE [None]
  - ULCER [None]
  - VOMITING [None]
